FAERS Safety Report 10478889 (Version 1)
Quarter: 2014Q3

REPORT INFORMATION
  Report Type: Spontaneous
  Country: FR (occurrence: FR)
  Receive Date: 20140926
  Receipt Date: 20140926
  Transmission Date: 20150326
  Serious: Yes (Life-Threatening, Hospitalization)
  Sender: FDA-Public Use
  Company Number: FR-PFIZER INC-2014262022

PATIENT
  Age: 3 Year
  Sex: Female
  Weight: 13.9 kg

DRUGS (2)
  1. ADVIL [Suspect]
     Active Substance: IBUPROFEN
     Indication: INFECTION
     Dosage: UNK
     Dates: start: 2014, end: 2014
  2. DOLIPRANE [Concomitant]
     Active Substance: ACETAMINOPHEN
     Indication: INFECTION
     Dosage: UNK
     Dates: start: 2014

REACTIONS (2)
  - Arthritis bacterial [Recovered/Resolved]
  - Sepsis [Recovered/Resolved]

NARRATIVE: CASE EVENT DATE: 20140315
